FAERS Safety Report 15492443 (Version 1)
Quarter: 2018Q4

REPORT INFORMATION
  Report Type: Spontaneous
  Country: US (occurrence: US)
  Receive Date: 20181012
  Receipt Date: 20181012
  Transmission Date: 20190205
  Serious: No
  Sender: FDA-Public Use
  Company Number: US-PFIZER INC-2018404230

PATIENT
  Age: 70 Year
  Sex: Female

DRUGS (1)
  1. XELJANZ [Suspect]
     Active Substance: TOFACITINIB CITRATE
     Dosage: 5 MG, 2X/DAY (EVERY 12 HOURS)

REACTIONS (6)
  - Pain in extremity [Unknown]
  - Onychomycosis [Unknown]
  - Drug ineffective [Unknown]
  - Dry skin [Unknown]
  - Pain [Unknown]
  - C-reactive protein decreased [Unknown]
